FAERS Safety Report 13688021 (Version 1)
Quarter: 2017Q2

REPORT INFORMATION
  Report Type: Spontaneous
  Country: US (occurrence: US)
  Receive Date: 20170626
  Receipt Date: 20170626
  Transmission Date: 20170830
  Serious: No
  Sender: FDA-Public Use
  Company Number: US-ACCORD-040532

PATIENT
  Age: 38 Year
  Sex: Female
  Weight: 64.86 kg

DRUGS (3)
  1. ACCORD CLONAZEPAM [Suspect]
     Active Substance: CLONAZEPAM
     Indication: ANXIETY
     Dosage: TWICE DAILY AS NEEDED
     Dates: start: 20160202
  2. ZONISAMIDE. [Concomitant]
     Active Substance: ZONISAMIDE
     Indication: SEIZURE
     Dates: start: 20160202
  3. CYCLOBENZAPRINE. [Concomitant]
     Active Substance: CYCLOBENZAPRINE
     Dates: start: 20160316

REACTIONS (1)
  - Drug screen false positive [Unknown]
